FAERS Safety Report 7096628-3 (Version None)
Quarter: 2010Q4

REPORT INFORMATION
  Report Type: 
  Country: None (occurrence: None)
  Receive Date: 20101110
  Receipt Date: 20101110
  Transmission Date: 20110411
  Serious: Yes (Life-Threatening)
  Sender: FDA-Public Use
  Company Number: None

PATIENT
  Age: 69 Year
  Sex: Male
  Weight: 76.6 kg

DRUGS (2)
  1. ZYVOX [Suspect]
     Indication: BODY TEMPERATURE INCREASED
     Dosage: 600 MG Q12HR IV
     Route: 042
     Dates: start: 20101107, end: 20101109
  2. ZYVOX [Suspect]
     Indication: INJURY
     Dosage: 600 MG Q12HR IV
     Route: 042
     Dates: start: 20101107, end: 20101109

REACTIONS (2)
  - TORSADE DE POINTES [None]
  - VENTRICULAR TACHYCARDIA [None]
